FAERS Safety Report 8698508 (Version 4)
Quarter: 2013Q3

REPORT INFORMATION
  Report Type: Report from Study
  Country: US (occurrence: US)
  Receive Date: 20120802
  Receipt Date: 20130815
  Transmission Date: 20140515
  Serious: Yes (Hospitalization, Other)
  Sender: FDA-Public Use
  Company Number: US-ABBOTT-12P-163-0963071-00

PATIENT
  Sex: Male
  Weight: 88.53 kg

DRUGS (12)
  1. ANDROGEL 1% [Suspect]
     Indication: BLOOD TESTOSTERONE DECREASED
     Dosage: 2 PACKETS A DAY
     Dates: start: 2008, end: 2011
  2. ANDROGEL 1% [Suspect]
     Dosage: 2 PACKETS A DAY
     Dates: start: 2011
  3. NOVOLOG [Concomitant]
     Indication: PRODUCT USED FOR UNKNOWN INDICATION
  4. LEVEMIR [Concomitant]
     Indication: PRODUCT USED FOR UNKNOWN INDICATION
  5. RANITIDINE [Concomitant]
     Indication: PRODUCT USED FOR UNKNOWN INDICATION
  6. SIMVASTATIN [Concomitant]
     Indication: PRODUCT USED FOR UNKNOWN INDICATION
  7. AMLODIPINE [Concomitant]
     Indication: HYPERTENSION
  8. INSULIN [Concomitant]
     Indication: DIABETES MELLITUS
  9. FAMOTADINE [Concomitant]
     Indication: GASTROOESOPHAGEAL REFLUX DISEASE
  10. CARVEDILOL [Concomitant]
     Indication: HYPERTENSION
  11. LOSARTIN [Concomitant]
     Indication: HYPERTENSION
  12. GLYPIZIDE [Concomitant]
     Indication: DIABETES MELLITUS

REACTIONS (17)
  - Renal cancer [Recovered/Resolved]
  - Nephrolithiasis [Recovered/Resolved]
  - Renal impairment [Not Recovered/Not Resolved]
  - Pain in extremity [Recovered/Resolved]
  - Muscle spasms [Recovered/Resolved]
  - Hyperhidrosis [Recovered/Resolved]
  - Renal neoplasm [Recovered/Resolved]
  - Nephrolithiasis [Not Recovered/Not Resolved]
  - Renal impairment [Not Recovered/Not Resolved]
  - Loss of consciousness [Recovered/Resolved]
  - Procedural pain [Not Recovered/Not Resolved]
  - Pain [Unknown]
  - Drug withdrawal syndrome [Unknown]
  - Muscle spasms [Unknown]
  - Hyperhidrosis [Unknown]
  - Asthenia [Unknown]
  - Fatigue [Unknown]
